FAERS Safety Report 6639685-8 (Version None)
Quarter: 2010Q1

REPORT INFORMATION
  Report Type: 
  Country: None (occurrence: None)
  Receive Date: 20100315
  Receipt Date: 20100301
  Transmission Date: 20100710
  Serious: Yes (Other)
  Sender: FDA-Public Use
  Company Number: A-CH2010-34353

PATIENT

DRUGS (1)
  1. TRACLEER [Suspect]
     Indication: DRUG USE FOR UNKNOWN INDICATION
     Dosage: 125 MG, BID; ORAL
     Route: 048

REACTIONS (2)
  - POLYARTERITIS NODOSA [None]
  - VASCULITIS [None]
